FAERS Safety Report 25763612 (Version 1)
Quarter: 2025Q3

REPORT INFORMATION
  Report Type: Spontaneous
  Country: US (occurrence: US)
  Receive Date: 20250905
  Receipt Date: 20250905
  Transmission Date: 20251020
  Serious: No
  Sender: DOMPE FARMACEUTICI
  Company Number: US-FARMAPROD-202410-3692

PATIENT
  Sex: Male

DRUGS (13)
  1. OXERVATE [Suspect]
     Active Substance: CENEGERMIN-BKBJ
     Indication: Neurotrophic keratopathy
     Route: 047
     Dates: start: 20240930
  2. TRESIBA [Concomitant]
     Active Substance: INSULIN DEGLUDEC
  3. HUMALOG [Concomitant]
     Active Substance: INSULIN LISPRO
  4. OMEPRAZOLE [Concomitant]
     Active Substance: OMEPRAZOLE
  5. XALATAN [Concomitant]
     Active Substance: LATANOPROST
  6. ASPIRIN [Concomitant]
     Active Substance: ASPIRIN
  7. JANUMET XR [Concomitant]
     Active Substance: METFORMIN HYDROCHLORIDE\SITAGLIPTIN PHOSPHATE
  8. SERTRALINE HYDROCHLORIDE [Concomitant]
     Active Substance: SERTRALINE HYDROCHLORIDE
  9. GABAPENTIN [Concomitant]
     Active Substance: GABAPENTIN
  10. FUROSEMIDE [Concomitant]
     Active Substance: FUROSEMIDE
  11. ZYRTEC [Concomitant]
     Active Substance: CETIRIZINE HYDROCHLORIDE
  12. LIPITOR [Concomitant]
     Active Substance: ATORVASTATIN CALCIUM
  13. TYLENOL [Concomitant]
     Active Substance: ACETAMINOPHEN

REACTIONS (2)
  - Wrong technique in product usage process [Recovered/Resolved]
  - Product administration error [Recovered/Resolved]
